FAERS Safety Report 10365920 (Version 5)
Quarter: 2014Q3

REPORT INFORMATION
  Report Type: Spontaneous
  Country: AU (occurrence: AU)
  Receive Date: 20140806
  Receipt Date: 20140825
  Transmission Date: 20150326
  Serious: Yes (Life-Threatening, Other)
  Sender: FDA-Public Use
  Company Number: PHHY2014AU090314

PATIENT
  Age: 39 Year
  Sex: Male

DRUGS (5)
  1. METHOTREXATE [Suspect]
     Active Substance: METHOTREXATE
     Indication: DERMATITIS ATOPIC
  2. AZATHIOPRINE. [Suspect]
     Active Substance: AZATHIOPRINE
     Indication: DERMATITIS ATOPIC
     Dosage: 200 MG, PER DAY
     Route: 048
     Dates: start: 201109, end: 201303
  3. THALIDOMIDE [Suspect]
     Active Substance: THALIDOMIDE
     Indication: DERMATITIS ATOPIC
     Dosage: UNK
  4. CICLOSPORIN [Suspect]
     Active Substance: CYCLOSPORINE
     Indication: DERMATITIS ATOPIC
     Dosage: UNK
     Route: 048
  5. MYCOPHENOLATE MOFETIL. [Suspect]
     Active Substance: MYCOPHENOLATE MOFETIL
     Indication: DERMATITIS ATOPIC
     Dosage: 2 G, PER DAY
     Route: 048
     Dates: start: 201405, end: 201408

REACTIONS (6)
  - Hodgkin^s disease [Recovered/Resolved]
  - Therapeutic response decreased [Unknown]
  - Treatment failure [Unknown]
  - Blood immunoglobulin E increased [Unknown]
  - Depression [Unknown]
  - Quality of life decreased [Unknown]

NARRATIVE: CASE EVENT DATE: 201008
